FAERS Safety Report 9853282 (Version 2)
Quarter: 2014Q1

REPORT INFORMATION
  Report Type: Report from Study
  Country: US (occurrence: US)
  Receive Date: 20140129
  Receipt Date: 20140210
  Transmission Date: 20141002
  Serious: Yes (Hospitalization)
  Sender: FDA-Public Use
  Company Number: US-ACTELION-A-US2014-93877

PATIENT
  Age: 74 Year
  Sex: Male

DRUGS (2)
  1. TRACLEER [Suspect]
     Indication: SARCOIDOSIS
     Dosage: 125 MG, UNK
     Route: 048
     Dates: start: 20110519
  2. COUMADIN [Concomitant]

REACTIONS (2)
  - Convulsion [Unknown]
  - Dyspnoea [Unknown]
